FAERS Safety Report 5482499-5 (Version None)
Quarter: 2007Q4

REPORT INFORMATION
  Report Type: 
  Country: None (occurrence: None)
  Receive Date: 20071011
  Receipt Date: 20070706
  Transmission Date: 20080405
  Serious: No
  Sender: FDA-Public Use
  Company Number: A0651230A

PATIENT
  Age: 48 Year
  Sex: Female

DRUGS (7)
  1. TYKERB [Suspect]
     Indication: BREAST CANCER
     Dosage: 1250MG PER DAY
     Route: 048
     Dates: start: 20070503
  2. ZOFRAN [Suspect]
     Indication: PROPHYLAXIS OF NAUSEA AND VOMITING
     Route: 048
  3. DOXIL [Concomitant]
     Route: 042
  4. NEXIUM [Concomitant]
  5. FAMVIR [Concomitant]
  6. HERBS [Concomitant]
  7. VITAMINS [Concomitant]

REACTIONS (8)
  - CONSTIPATION [None]
  - DIARRHOEA [None]
  - GAIT DISTURBANCE [None]
  - HYPOAESTHESIA [None]
  - NAUSEA [None]
  - PAIN [None]
  - RASH [None]
  - UPPER RESPIRATORY TRACT INFECTION [None]
